FAERS Safety Report 10701752 (Version 9)
Quarter: 2015Q4

REPORT INFORMATION
  Report Type: Spontaneous
  Country: US (occurrence: US)
  Receive Date: 20150109
  Receipt Date: 20151008
  Transmission Date: 20160304
  Serious: Yes (Disabling, Other)
  Sender: FDA-Public Use
  Company Number: US-009507513-1204USA04485

PATIENT
  Sex: Male
  Weight: 99.32 kg

DRUGS (6)
  1. PROPECIA [Suspect]
     Active Substance: FINASTERIDE
     Indication: ALOPECIA
     Dosage: 1 MG, QD
     Route: 048
     Dates: start: 1999, end: 2010
  2. FINASTERIDE. [Suspect]
     Active Substance: FINASTERIDE
     Indication: ALOPECIA
     Dosage: 1.25 MG, QD
     Route: 048
     Dates: start: 2010, end: 2014
  3. PROZAC [Concomitant]
     Active Substance: FLUOXETINE HYDROCHLORIDE
     Indication: DEPRESSION
     Dosage: 40 MG, QD
     Route: 065
     Dates: start: 1991, end: 2010
  4. SYNTHROID [Concomitant]
     Active Substance: LEVOTHYROXINE SODIUM
     Indication: HYPOTHYROIDISM
     Dosage: 80-100 MCG
     Route: 065
     Dates: start: 1990
  5. FINASTERIDE. [Suspect]
     Active Substance: FINASTERIDE
     Indication: ALOPECIA
     Dosage: 5 MG, QD
     Route: 048
  6. DEXEDRINE [Concomitant]
     Active Substance: DEXTROAMPHETAMINE SULFATE
     Indication: DEPRESSION
     Dosage: UNK
     Route: 065
     Dates: start: 1994

REACTIONS (27)
  - Ejaculation failure [Not Recovered/Not Resolved]
  - Wrong technique in product usage process [Unknown]
  - Seasonal affective disorder [Unknown]
  - Body height decreased [Unknown]
  - Weight increased [Unknown]
  - Type V hyperlipidaemia [Unknown]
  - Anxiety [Not Recovered/Not Resolved]
  - Secondary hypogonadism [Unknown]
  - Priapism [Unknown]
  - Depression [Not Recovered/Not Resolved]
  - Hypertension [Not Recovered/Not Resolved]
  - Thyroid neoplasm [Unknown]
  - Ejaculation disorder [Not Recovered/Not Resolved]
  - Insomnia [Unknown]
  - Fatigue [Unknown]
  - Drug administration error [Unknown]
  - Carpal tunnel syndrome [Not Recovered/Not Resolved]
  - Sexual dysfunction [Not Recovered/Not Resolved]
  - Peyronie^s disease [Unknown]
  - Tonsillectomy [Unknown]
  - Mood altered [Unknown]
  - Haemorrhoids [Unknown]
  - Basal cell carcinoma [Unknown]
  - Cognitive disorder [Not Recovered/Not Resolved]
  - Erectile dysfunction [Not Recovered/Not Resolved]
  - Libido decreased [Not Recovered/Not Resolved]
  - Fibromyalgia [Unknown]

NARRATIVE: CASE EVENT DATE: 2001
